FAERS Safety Report 6860608-0 (Version None)
Quarter: 2010Q3

REPORT INFORMATION
  Report Type: 
  Country: None (occurrence: None)
  Receive Date: 20100720
  Receipt Date: 20100715
  Transmission Date: 20110219
  Serious: Yes (Death)
  Sender: FDA-Public Use
  Company Number: TR-ELI_LILLY_AND_COMPANY-TR201007003729

PATIENT
  Age: 82 Year
  Sex: Female

DRUGS (3)
  1. HUMULIN N [Suspect]
     Indication: DIABETES MELLITUS
     Dosage: 8 U, 2/D
     Route: 058
  2. HUMULIN N [Suspect]
     Dosage: 8 IU, EACH EVENING
     Route: 058
  3. DEMAX [Concomitant]
     Indication: DEMENTIA ALZHEIMER'S TYPE
     Dosage: UNK UNK, DAILY (1/D)
     Route: 048
     Dates: start: 20030101

REACTIONS (1)
  - DEMENTIA ALZHEIMER'S TYPE [None]
